FAERS Safety Report 8006552-7 (Version None)
Quarter: 2011Q4

REPORT INFORMATION
  Report Type: 
  Country: None (occurrence: None)
  Receive Date: 20111227
  Receipt Date: 20111215
  Transmission Date: 20120403
  Serious: Yes (Disabling)
  Sender: FDA-Public Use
  Company Number: GB-BRISTOL-MYERS SQUIBB COMPANY-16298499

PATIENT
  Age: 32 Year
  Sex: Female
  Weight: 65 kg

DRUGS (6)
  1. DIAZEPAM [Concomitant]
     Dates: start: 20110830
  2. VALPROIC ACID [Concomitant]
     Dates: start: 20110830
  3. QUETIAPINE [Suspect]
     Dates: start: 20110920
  4. VENLAFAXINE HCL [Concomitant]
     Dates: start: 20110830
  5. ZOPICLONE [Concomitant]
     Dates: start: 20110830
  6. ARIPIPRAZOLE [Suspect]
     Dates: start: 20111205

REACTIONS (4)
  - MALAISE [None]
  - RESTLESS LEGS SYNDROME [None]
  - TREMOR [None]
  - ANXIETY [None]
